FAERS Safety Report 10387558 (Version 1)
Quarter: 2014Q1

REPORT INFORMATION
  Report Type: Spontaneous
  Country: US (occurrence: None)
  Receive Date: 20140306
  Receipt Date: 20140306
  Transmission Date: 20141002
  Serious: Yes (Other)
  Sender: FDA-Public Use
  Company Number: 163-21880-13121314

PATIENT
  Age: 62 Year
  Sex: Male
  Weight: 79.2 kg

DRUGS (18)
  1. REVLIMID (LENALIDOMIDE) (25 MILLIGRAM, CAPSULES) [Suspect]
     Indication: PLASMA CELL MYELOMA
     Dosage: 25 MG, 21 IN 28 D
     Route: 048
     Dates: start: 20131107, end: 20131205
  2. DEXAMETHASONE [Concomitant]
  3. APIXABAN [Concomitant]
  4. HYDROCODONE [Concomitant]
  5. TOPROL (METOPROLOL SUCCINATE) [Concomitant]
  6. CLONIDINE [Concomitant]
  7. VITAMIN D3 (COLECALCIFEROL) [Concomitant]
  8. CALCIUM CARBONATE [Concomitant]
  9. CARTIA XT (DILTIAZEM) [Concomitant]
  10. LORAZEPAM [Concomitant]
  11. MULTIVITAMINS [Concomitant]
  12. ONDANSETRON HCL (ONDANSETRON HYDROCHLORIDE) [Concomitant]
  13. PROCHLORPERAZINE MALEATE [Concomitant]
  14. SPIRONOLACTONE [Concomitant]
  15. METOPROLOL SUCCINATE [Concomitant]
  16. PROBIOTIC (BIFIDOBACTERIUM LACTIS) [Concomitant]
  17. ZOMETA (ZOLEDRONIC ACID) [Concomitant]
  18. HYDROCODONE W/ACETAMINOPHEN (VICODIN) [Concomitant]

REACTIONS (3)
  - Pancytopenia [None]
  - Constipation [None]
  - Diarrhoea [None]
